FAERS Safety Report 10558076 (Version 1)
Quarter: 2014Q4

REPORT INFORMATION
  Report Type: Spontaneous
  Country: US (occurrence: US)
  Receive Date: 20141031
  Receipt Date: 20141031
  Transmission Date: 20150529
  Serious: No
  Sender: FDA-Public Use
  Company Number: US-LUNDBECK-DKLU1104225

PATIENT
  Sex: Female

DRUGS (4)
  1. NORTHERA [Suspect]
     Active Substance: DROXIDOPA
     Indication: PARKINSON^S DISEASE
     Dates: start: 20140928
  2. NORTHERA [Suspect]
     Active Substance: DROXIDOPA
     Dates: start: 20140930
  3. NORTHERA [Suspect]
     Active Substance: DROXIDOPA
     Indication: ORTHOSTATIC HYPOTENSION
     Dates: start: 20140929
  4. NORTHERA [Suspect]
     Active Substance: DROXIDOPA
     Dates: start: 20141001

REACTIONS (3)
  - Chest pain [Unknown]
  - Dizziness [Unknown]
  - Tremor [Unknown]
